FAERS Safety Report 4409853-4 (Version None)
Quarter: 2004Q3

REPORT INFORMATION
  Report Type: 
  Country: None (occurrence: None)
  Receive Date: 20040728
  Receipt Date: 20040409
  Transmission Date: 20050211
  Serious: No
  Sender: FDA-Public Use
  Company Number: US-GLAXOSMITHKLINE-A0506475A

PATIENT
  Age: 62 Year
  Sex: Female

DRUGS (8)
  1. DYAZIDE [Suspect]
     Route: 048
  2. CELEBREX [Concomitant]
  3. PREDNISONE [Concomitant]
  4. SYNTHROID [Concomitant]
  5. METHOTREXATE [Concomitant]
  6. FOLIC ACID [Concomitant]
  7. VITAMIN D [Concomitant]
  8. TYLENOL W/ CODEINE NO. 3 [Concomitant]

REACTIONS (5)
  - OROPHARYNGEAL SWELLING [None]
  - PHARMACEUTICAL PRODUCT COMPLAINT [None]
  - PRURITUS [None]
  - THROAT IRRITATION [None]
  - URTICARIA [None]
